FAERS Safety Report 16436749 (Version 1)
Quarter: 2019Q2

REPORT INFORMATION
  Report Type: Report from Study
  Country: US (occurrence: US)
  Receive Date: 20190614
  Receipt Date: 20190614
  Transmission Date: 20190711
  Serious: Yes (Hospitalization, Other)
  Sender: FDA-Public Use
  Company Number: PHEH2019US025016

PATIENT
  Sex: Female

DRUGS (1)
  1. ENTRESTO [Suspect]
     Active Substance: SACUBITRIL\VALSARTAN
     Indication: PRODUCT USED FOR UNKNOWN INDICATION
     Dosage: UNK
     Route: 048

REACTIONS (18)
  - Hypokinesia [Unknown]
  - Bronchitis [Unknown]
  - Pain [Unknown]
  - Bone cyst [Unknown]
  - Diabetes mellitus [Unknown]
  - Fall [Unknown]
  - Heart valve incompetence [Unknown]
  - Cardiomegaly [Unknown]
  - Dyspnoea [Unknown]
  - Electrocardiogram abnormal [Unknown]
  - Lung neoplasm malignant [Unknown]
  - Loss of consciousness [Unknown]
  - Hypotension [Unknown]
  - Musculoskeletal stiffness [Unknown]
  - Left ventricular dysfunction [Unknown]
  - Hyperthyroidism [Unknown]
  - Arthritis [Unknown]
  - Upper limb fracture [Unknown]
